FAERS Safety Report 7343587-1 (Version None)
Quarter: 2011Q1

REPORT INFORMATION
  Report Type: 
  Country: None (occurrence: None)
  Receive Date: 20110310
  Receipt Date: 20100615
  Transmission Date: 20110831
  Serious: No
  Sender: FDA-Public Use
  Company Number: A0865226A

PATIENT
  Age: 44 Year
  Sex: Female

DRUGS (4)
  1. NICODERM CQ [Suspect]
  2. NICORETTE [Suspect]
  3. NICORETTE [Suspect]
  4. NICORETTE [Suspect]

REACTIONS (8)
  - INTENTIONAL DRUG MISUSE [None]
  - RASH [None]
  - NICOTINE DEPENDENCE [None]
  - ERYTHEMA [None]
  - OEDEMA PERIPHERAL [None]
  - APPLICATION SITE PRURITUS [None]
  - HEADACHE [None]
  - TOOTHACHE [None]
